FAERS Safety Report 8127975-1 (Version None)
Quarter: 2012Q1

REPORT INFORMATION
  Report Type: 
  Country: None (occurrence: None)
  Receive Date: 20120210
  Receipt Date: 20110823
  Transmission Date: 20120608
  Serious: No
  Sender: FDA-Public Use
  Company Number: US-GLAXOSMITHKLINE-A0942748A

PATIENT
  Sex: Female

DRUGS (1)
  1. PAROXETINE [Suspect]
     Indication: PRODUCT USED FOR UNKNOWN INDICATION
     Dosage: 37.5MG UNKNOWN
     Route: 048

REACTIONS (6)
  - PRODUCT QUALITY ISSUE [None]
  - ILL-DEFINED DISORDER [None]
  - NAUSEA [None]
  - PAIN IN EXTREMITY [None]
  - DRUG INEFFECTIVE [None]
  - HEADACHE [None]
